FAERS Safety Report 22329217 (Version 1)
Quarter: 2023Q2

REPORT INFORMATION
  Report Type: Spontaneous
  Country: US (occurrence: None)
  Receive Date: 20230517
  Receipt Date: 20230517
  Transmission Date: 20230721
  Serious: No
  Sender: FDA-Public Use
  Company Number: US-ROCHE-3344704

PATIENT
  Age: 34 Year
  Sex: Male
  Weight: 41.768 kg

DRUGS (4)
  1. EVRYSDI [Suspect]
     Active Substance: RISDIPLAM
     Indication: Spinal muscular atrophy
     Dosage: FORMULATION:BOTTLE?STRENGTH: 60MG/80ML?LAST DOSE DATE: 04/MAY/2023?EVRYSDI POWDER FOR ORAL SOLUTION
     Route: 048
  2. ZYRTEC [Concomitant]
     Active Substance: CETIRIZINE HYDROCHLORIDE
     Indication: Seasonal allergy
  3. LOSARTAN [Concomitant]
     Active Substance: LOSARTAN
     Dates: start: 2021
  4. LISINOPRIL [Concomitant]
     Active Substance: LISINOPRIL
     Dates: start: 2018, end: 2021

REACTIONS (4)
  - Product dose omission issue [Unknown]
  - Asthenia [Recovered/Resolved]
  - Product packaging quantity issue [Unknown]
  - Product packaging quantity issue [Unknown]

NARRATIVE: CASE EVENT DATE: 20220101
